FAERS Safety Report 7653620-5 (Version None)
Quarter: 2011Q3

REPORT INFORMATION
  Report Type: 
  Country: None (occurrence: None)
  Receive Date: 20110803
  Receipt Date: 20110803
  Transmission Date: 20111222
  Serious: No
  Sender: FDA-Public Use
  Company Number: None

PATIENT
  Age: 62 Year
  Sex: Female
  Weight: 90.718 kg

DRUGS (1)
  1. ARIPIPRAZOLE [Suspect]
     Dosage: 30 MG
     Route: 048

REACTIONS (2)
  - AGITATION [None]
  - DELUSION [None]
